FAERS Safety Report 7201298-7 (Version None)
Quarter: 2010Q4

REPORT INFORMATION
  Report Type: 
  Country: None (occurrence: None)
  Receive Date: 20101215
  Receipt Date: 20101201
  Transmission Date: 20110411
  Serious: Yes (Other)
  Sender: FDA-Public Use
  Company Number: 1000017648

PATIENT
  Age: 71 Year
  Sex: Female

DRUGS (11)
  1. MEMANTINE HCL [Suspect]
     Dosage: SEE IMAGE
  2. MEMANTINE HCL [Suspect]
     Dosage: SEE IMAGE
  3. MEMANTINE HCL [Suspect]
     Dosage: SEE IMAGE
  4. MEMANTINE HCL [Suspect]
     Dosage: SEE IMAGE
  5. MEMANTINE HCL [Suspect]
     Dosage: SEE IMAGE
  6. MEMANTINE HCL [Suspect]
     Dosage: SEE IMAGE
  7. ARICEPT [Concomitant]
  8. CYANOCOBALAMIN (CYANOCOBALAMIN) (CYANOCOBALAMIN) [Concomitant]
  9. FENOFIBRATE [Concomitant]
  10. QUININE(QUININE) (QUININE) [Concomitant]
  11. VENLAFAXINE XR (VENLAFAXINE) (VENLAFAXINE) [Concomitant]

REACTIONS (4)
  - ANXIETY [None]
  - CONDITION AGGRAVATED [None]
  - DIZZINESS [None]
  - PANIC ATTACK [None]
